FAERS Safety Report 4537488-1 (Version None)
Quarter: 2004Q4

REPORT INFORMATION
  Report Type: 
  Country: None (occurrence: None)
  Receive Date: 20041221
  Receipt Date: 20041109
  Transmission Date: 20050328
  Serious: No
  Sender: FDA-Public Use
  Company Number: A-US2004-08038

PATIENT
  Age: 87 Year
  Sex: Female

DRUGS (1)
  1. TRACLEER [Suspect]
     Indication: PULMONARY HYPERTENSION
     Dosage: 62.5 MG, BID, ORAL
     Route: 048
     Dates: end: 20040101

REACTIONS (3)
  - DIZZINESS [None]
  - HEADACHE [None]
  - TREMOR [None]
